FAERS Safety Report 18996472 (Version 1)
Quarter: 2021Q1

REPORT INFORMATION
  Report Type: Spontaneous
  Country: US (occurrence: US)
  Receive Date: 20210128
  Receipt Date: 20210128
  Transmission Date: 20210420
  Serious: Yes (Death, Life-Threatening, Hospitalization)
  Sender: FDA-Public Use
  Company Number: None

PATIENT
  Age: 71 Year
  Sex: Male
  Weight: 108.86 kg

DRUGS (7)
  1. LIPITOR [Concomitant]
     Active Substance: ATORVASTATIN CALCIUM
  2. PROPRANOLOL [Concomitant]
     Active Substance: PROPRANOLOL HYDROCHLORIDE
  3. EPINEPHRINE AUTO?INJECTOR [Suspect]
     Active Substance: EPINEPHRINE
  4. METFORMIN [Concomitant]
     Active Substance: METFORMIN HYDROCHLORIDE
  5. ASA [Concomitant]
     Active Substance: ASPIRIN
  6. VALSARTIN [Concomitant]
     Active Substance: VALSARTAN
  7. FISH OIL [Concomitant]
     Active Substance: FISH OIL

REACTIONS (3)
  - Anaphylactic reaction [None]
  - Wound [None]
  - Injection site reaction [None]

NARRATIVE: CASE EVENT DATE: 20200822
